FAERS Safety Report 8977785 (Version 1)
Quarter: 2012Q4

REPORT INFORMATION
  Report Type: 
  Country: US (occurrence: US)
  Receive Date: 20121220
  Receipt Date: 20121220
  Transmission Date: 20130627
  Serious: Yes (Hospitalization)
  Sender: FDA-Public Use
  Company Number: US-AMGEN-USASP2012081642

PATIENT
  Age: 44 Year
  Sex: Male

DRUGS (1)
  1. ENBREL [Suspect]
     Indication: RHEUMATOID ARTHRITIS
     Dosage: 50 mg once weekly
     Dates: start: 201201, end: 201211

REACTIONS (3)
  - Back pain [Not Recovered/Not Resolved]
  - Spinal column stenosis [Recovered/Resolved]
  - Hypoaesthesia [Not Recovered/Not Resolved]
